FAERS Safety Report 13877326 (Version 1)
Quarter: 2017Q3

REPORT INFORMATION
  Report Type: Spontaneous
  Country: GB (occurrence: GB)
  Receive Date: 20170817
  Receipt Date: 20170817
  Transmission Date: 20171127
  Serious: Yes (Hospitalization)
  Sender: FDA-Public Use
  Company Number: GB-PFIZER INC-2017348800

PATIENT
  Age: 48 Year
  Sex: Male

DRUGS (2)
  1. CIPROFLOXACIN. [Suspect]
     Active Substance: CIPROFLOXACIN
     Indication: PYELONEPHRITIS
     Dosage: UNK
     Route: 042
  2. GENTAMICIN SULFATE. [Suspect]
     Active Substance: GENTAMICIN SULFATE
     Indication: PYELONEPHRITIS
     Dosage: UNK
     Route: 042

REACTIONS (4)
  - Rash [Recovered/Resolved]
  - Vasculitis [Unknown]
  - Pruritus [Unknown]
  - Hypersensitivity [Unknown]
